FAERS Safety Report 7425446-9 (Version None)
Quarter: 2011Q2

REPORT INFORMATION
  Report Type: 
  Country: None (occurrence: None)
  Receive Date: 20110414
  Receipt Date: 20110328
  Transmission Date: 20111010
  Serious: Yes (Hospitalization, Other)
  Sender: FDA-Public Use
  Company Number: 029962

PATIENT
  Sex: Male

DRUGS (6)
  1. BENSERAZIDE HYDROCHLORIDE W/LEVODOPA [Concomitant]
  2. KETOPROFEN [Concomitant]
  3. ROTIGOTINE (ROTIGOTINE) [Suspect]
     Indication: PARKINSON'S DISEASE
     Dosage: (2 MG- 16 MG TRANSDERMAL), (16 MG 1X/24 HOURS TRANSDERMAL)
     Route: 062
     Dates: start: 20101012
  4. ROTIGOTINE (ROTIGOTINE) [Suspect]
     Indication: PARKINSON'S DISEASE
     Dosage: (2 MG- 16 MG TRANSDERMAL), (16 MG 1X/24 HOURS TRANSDERMAL)
     Route: 062
     Dates: start: 20100817, end: 20101011
  5. GLYBURIDE [Concomitant]
  6. SELEGILINE HYDROCHLORIDE [Concomitant]

REACTIONS (3)
  - FALL [None]
  - SUBDURAL HAEMATOMA [None]
  - GAIT DISTURBANCE [None]
